FAERS Safety Report 21371995 (Version 6)
Quarter: 2022Q4

REPORT INFORMATION
  Report Type: Report from Study
  Country: US (occurrence: US)
  Receive Date: 20220923
  Receipt Date: 20221226
  Transmission Date: 20230112
  Serious: Yes (Other)
  Sender: FDA-Public Use
  Company Number: US-GLAXOSMITHKLINE-US2022AMR118118

PATIENT
  Age: 81 Year

DRUGS (1)
  1. BELANTAMAB MAFODOTIN [Suspect]
     Active Substance: BELANTAMAB MAFODOTIN
     Indication: Plasma cell myeloma
     Dosage: UNK
     Dates: start: 20220616

REACTIONS (3)
  - Visual acuity reduced [Unknown]
  - Keratopathy [Unknown]
  - Dry eye [Unknown]

NARRATIVE: CASE EVENT DATE: 20220805
